FAERS Safety Report 6887675-2 (Version None)
Quarter: 2010Q3

REPORT INFORMATION
  Report Type: 
  Country: None (occurrence: None)
  Receive Date: 20100730
  Receipt Date: 20100723
  Transmission Date: 20110219
  Serious: Yes (Hospitalization)
  Sender: FDA-Public Use
  Company Number: FR-SANOFI-AVENTIS-2010SA043176

PATIENT
  Age: 62 Year
  Sex: Female

DRUGS (1)
  1. TAXOTERE [Suspect]
     Indication: BREAST CANCER
     Route: 042
     Dates: end: 20100701

REACTIONS (3)
  - FEBRILE NEUTROPENIA [None]
  - LUNG DISORDER [None]
  - TOXIC SKIN ERUPTION [None]
